FAERS Safety Report 4563043-3 (Version None)
Quarter: 2005Q1

REPORT INFORMATION
  Report Type: 
  Country: None (occurrence: None)
  Receive Date: 20050125
  Receipt Date: 20040528
  Transmission Date: 20050727
  Serious: No
  Sender: FDA-Public Use
  Company Number: 8138

PATIENT

DRUGS (4)
  1. METHOTREXATE [Suspect]
     Indication: ACUTE LYMPHOCYTIC LEUKAEMIA
     Dosage: 5 G/M2 PER CYCLE, IV
     Route: 042
  2. CYTARABINE [Suspect]
     Indication: ACUTE LYMPHOCYTIC LEUKAEMIA
     Dosage: 200 MG/M2, IV
     Route: 042
  3. MERCAPTOPURINE [Concomitant]
  4. LEUCOVORIN [Concomitant]

REACTIONS (1)
  - CONVULSION [None]
